FAERS Safety Report 7171119-X (Version None)
Quarter: 2010Q4

REPORT INFORMATION
  Report Type: 
  Country: None (occurrence: None)
  Receive Date: 20101217
  Receipt Date: 20101202
  Transmission Date: 20110411
  Serious: Yes (Other)
  Sender: FDA-Public Use
  Company Number: PHFR2010GB05730

PATIENT
  Age: 20 Year
  Sex: Male

DRUGS (1)
  1. RITALIN [Suspect]
     Dosage: 2X 10 MG PER DAY
     Route: 048

REACTIONS (2)
  - AGGRESSION [None]
  - OVERDOSE [None]
